FAERS Safety Report 22135497 (Version 1)
Quarter: 2023Q1

REPORT INFORMATION
  Report Type: Spontaneous
  Country: US (occurrence: US)
  Receive Date: 20230324
  Receipt Date: 20230324
  Transmission Date: 20230418
  Serious: No
  Sender: FDA-Public Use
  Company Number: US-Aytu BioPharma, Inc.-2022-AYT-00004

PATIENT

DRUGS (1)
  1. ADZENYS XR-ODT [Suspect]
     Active Substance: AMPHETAMINE
     Indication: Attention deficit hyperactivity disorder
     Dosage: 6.3 MILLIGRAM
     Route: 048

REACTIONS (3)
  - Somnolence [Unknown]
  - Fatigue [Unknown]
  - Wrong technique in product usage process [Unknown]
